FAERS Safety Report 5101478-0 (Version None)
Quarter: 2006Q3

REPORT INFORMATION
  Report Type: 
  Country: None (occurrence: None)
  Receive Date: 20060911
  Receipt Date: 20060724
  Transmission Date: 20061208
  Serious: Yes (Other)
  Sender: FDA-Public Use
  Company Number: US-NOVOPROD-255418

PATIENT
  Age: 55 Year
  Sex: Female
  Weight: 58 kg

DRUGS (5)
  1. SYNTHROID [Concomitant]
     Indication: HYPOTHYROIDISM
     Route: 048
  2. CELEXA [Concomitant]
     Indication: MOOD SWINGS
     Route: 048
  3. METFORMIN HCL [Concomitant]
     Indication: DIABETES MELLITUS NON-INSULIN-DEPENDENT
     Route: 048
  4. VITAMIN CAP [Concomitant]
     Indication: PROPHYLAXIS
     Route: 048
  5. VAGIFEM [Suspect]
     Indication: VULVOVAGINAL DRYNESS
     Dosage: 1 TAB, BIW
     Route: 067
     Dates: start: 20060201, end: 20060401

REACTIONS (1)
  - LIPOMA OF BREAST [None]
